FAERS Safety Report 6005523-X (Version None)
Quarter: 2008Q4

REPORT INFORMATION
  Report Type: 
  Country: None (occurrence: None)
  Receive Date: 20081215
  Receipt Date: 20081203
  Transmission Date: 20090506
  Serious: Yes (Life-Threatening, Disabling, Other)
  Sender: FDA-Public Use
  Company Number: 2008AP003318

PATIENT
  Age: 67 Year
  Sex: Female

DRUGS (2)
  1. TERBINAFINE HCL [Suspect]
     Indication: NAIL INFECTION
     Dosage: 250 MG;QD; PO
     Route: 048
     Dates: start: 20080714
  2. ALENDRONATE SODIUM [Concomitant]

REACTIONS (2)
  - HYPERCALCAEMIA [None]
  - MALAISE [None]
